FAERS Safety Report 9869857 (Version 1)
Quarter: 2014Q1

REPORT INFORMATION
  Report Type: Report from Study
  Country: US (occurrence: US)
  Receive Date: 20140205
  Receipt Date: 20140205
  Transmission Date: 20141002
  Serious: Yes (Death)
  Sender: FDA-Public Use
  Company Number: US-ASTELLAS-2014US001141

PATIENT
  Age: 65 Year
  Sex: Female

DRUGS (1)
  1. ERLOTINIB TABLET [Suspect]
     Indication: VULVAL CANCER
     Dosage: 150 MG, UID/QD
     Route: 065
     Dates: start: 20131115

REACTIONS (2)
  - Off label use [Unknown]
  - Death [Fatal]
